FAERS Safety Report 8911546 (Version 2)
Quarter: 2012Q4

REPORT INFORMATION
  Report Type: 
  Country: BR (occurrence: BR)
  Receive Date: 20121115
  Receipt Date: 20121123
  Transmission Date: 20130627
  Serious: Yes (Hospitalization)
  Sender: FDA-Public Use
  Company Number: BR-PFIZER INC-2012283931

PATIENT
  Age: 72 Year
  Sex: Female

DRUGS (1)
  1. NORVASC [Suspect]
     Indication: BLOOD PRESSURE INCREASED
     Dosage: 10 mg (2 tablets) daily
     Route: 048
     Dates: start: 20090530

REACTIONS (1)
  - Cardiovascular disorder [Unknown]
